FAERS Safety Report 7342959-9 (Version None)
Quarter: 2011Q1

REPORT INFORMATION
  Report Type: 
  Country: None (occurrence: None)
  Receive Date: 20110310
  Receipt Date: 20110225
  Transmission Date: 20110831
  Serious: Yes (Other)
  Sender: FDA-Public Use
  Company Number: PHHY2011CA16134

PATIENT
  Sex: Female

DRUGS (3)
  1. ACLASTA [Suspect]
     Indication: OSTEOPOROSIS
     Dosage: UNK
     Dates: start: 20090219
  2. ACLASTA [Suspect]
     Dosage: UNK
     Dates: start: 20100222
  3. PREDNISONE TAB [Concomitant]

REACTIONS (2)
  - DRUG INEFFECTIVE [None]
  - RIB FRACTURE [None]
